FAERS Safety Report 14741116 (Version 1)
Quarter: 2018Q2

REPORT INFORMATION
  Report Type: Spontaneous
  Country: US (occurrence: US)
  Receive Date: 20180404
  Receipt Date: 20180404
  Transmission Date: 20180711
  Serious: Yes (Hospitalization)
  Sender: FDA-Public Use
  Company Number: None

PATIENT
  Age: 66 Year
  Sex: Male

DRUGS (17)
  1. OSELTAMIVIR [Concomitant]
     Active Substance: OSELTAMIVIR
  2. SPIRONOLACT [Concomitant]
     Active Substance: SPIRONOLACTONE
  3. AMOXICILLIN. [Concomitant]
     Active Substance: AMOXICILLIN
  4. METOLAZONE. [Concomitant]
     Active Substance: METOLAZONE
  5. DIAZEPAM. [Concomitant]
     Active Substance: DIAZEPAM
  6. METOPROLOL TARTRATE. [Concomitant]
     Active Substance: METOPROLOL TARTRATE
  7. LISINOPRIL. [Concomitant]
     Active Substance: LISINOPRIL
  8. VITAMIN D [Concomitant]
     Active Substance: CHOLECALCIFEROL
  9. BUDESONIDE. [Concomitant]
     Active Substance: BUDESONIDE
  10. TRIAMT/HCTZ [Concomitant]
     Active Substance: HYDROCHLOROTHIAZIDE\TRIAMTERENE
  11. POT CL MICRO [Concomitant]
  12. IMATINIB MES 400MG TAB [Suspect]
     Active Substance: IMATINIB MESYLATE
     Indication: CHRONIC MYELOID LEUKAEMIA
     Route: 048
     Dates: start: 20170317
  13. MUPIROCIN. [Concomitant]
     Active Substance: MUPIROCIN
  14. MAGNESIUM-OX [Concomitant]
  15. KLOR-CON [Concomitant]
     Active Substance: POTASSIUM CHLORIDE
  16. ATORVASTATIN [Concomitant]
     Active Substance: ATORVASTATIN
  17. ELIQUIS [Concomitant]
     Active Substance: APIXABAN

REACTIONS (2)
  - Hospitalisation [None]
  - Therapy cessation [None]

NARRATIVE: CASE EVENT DATE: 201803
